FAERS Safety Report 8158446-4 (Version None)
Quarter: 2012Q1

REPORT INFORMATION
  Report Type: 
  Country: None (occurrence: None)
  Receive Date: 20120223
  Receipt Date: 20120220
  Transmission Date: 20120608
  Serious: No
  Sender: FDA-Public Use
  Company Number: US-PFIZER INC-2012001778

PATIENT
  Sex: Female

DRUGS (1)
  1. ARMODAFINIL [Suspect]
     Indication: FUNGAL INFECTION
     Dosage: 200 MG, UNK
     Route: 048
     Dates: start: 20020101

REACTIONS (2)
  - INAPPROPRIATE SCHEDULE OF DRUG ADMINISTRATION [None]
  - DRUG EFFECT DECREASED [None]
